FAERS Safety Report 12285627 (Version 1)
Quarter: 2016Q2

REPORT INFORMATION
  Report Type: Spontaneous
  Country: US (occurrence: None)
  Receive Date: 20160419
  Receipt Date: 20160419
  Transmission Date: 20160815
  Serious: No
  Sender: FDA-Public Use
  Company Number: None

PATIENT
  Sex: Female
  Weight: 73.94 kg

DRUGS (3)
  1. CENTREUM DAILY VITAMINS [Concomitant]
  2. DAILY SPRING VALLEY GLUCOSAMINE CONDROITIN [Concomitant]
  3. AZITHROMYCIN TAB 250MG/AZITHROMYCIN TABLETS 250MG GREENSTONE [Suspect]
     Active Substance: AZITHROMYCIN ANHYDROUS
     Dosage: 250MG 6 MOUTH
     Route: 048
     Dates: start: 20070429

REACTIONS (4)
  - Pharyngeal oedema [None]
  - Urticaria [None]
  - Product substitution issue [None]
  - Dyspnoea [None]

NARRATIVE: CASE EVENT DATE: 2007
